FAERS Safety Report 8032502-3 (Version None)
Quarter: 2012Q1

REPORT INFORMATION
  Report Type: 
  Country: None (occurrence: None)
  Receive Date: 20120105
  Receipt Date: 20111222
  Transmission Date: 20120608
  Serious: Yes (Hospitalization)
  Sender: FDA-Public Use
  Company Number: 1000025385

PATIENT
  Age: 80 Year
  Sex: Male
  Weight: 78 kg

DRUGS (7)
  1. SPIRIVA [Concomitant]
  2. SIMVASTATIN [Concomitant]
  3. ATACAND [Concomitant]
  4. ROFLUMILAST (ROFLUMILAST) (TABLETS) [Suspect]
     Indication: CHRONIC OBSTRUCTIVE PULMONARY DISEASE
     Dosage: 500 MCG (500 MCG, 1 IN 1 D), ORAL
     Route: 048
     Dates: start: 20111029, end: 20111101
  5. ALLOPURINOL [Concomitant]
  6. MAGNESIUM [Concomitant]
  7. FORADIL [Concomitant]

REACTIONS (10)
  - COGNITIVE DISORDER [None]
  - BLOOD PH ABNORMAL [None]
  - BLOOD GASES ABNORMAL [None]
  - URINARY RETENTION [None]
  - HYPOTENSION [None]
  - DEPRESSION [None]
  - DELIRIUM [None]
  - TACHYCARDIA [None]
  - HEART RATE INCREASED [None]
  - HYPOVENTILATION [None]
